FAERS Safety Report 8317159-6 (Version None)
Quarter: 2012Q2

REPORT INFORMATION
  Report Type: 
  Country: None (occurrence: None)
  Receive Date: 20120427
  Receipt Date: 20120418
  Transmission Date: 20120825
  Serious: Yes (Other)
  Sender: FDA-Public Use
  Company Number: ES-TEVA-334317ISR

PATIENT
  Age: 60 Year
  Sex: Female

DRUGS (9)
  1. ACIDO ALENDRONICO SEMANAL RATIOPHARM [Suspect]
     Route: 048
     Dates: start: 20100224, end: 20100307
  2. CALCIUM-SANDOZ D 100 MG/ 880 UI [Concomitant]
     Route: 048
  3. METAMIZOLE [Concomitant]
     Route: 048
  4. OMEPRAZOLE [Concomitant]
     Dosage: 40 MILLIGRAM;
     Route: 048
  5. ACETAMINOPHEN [Concomitant]
     Route: 048
  6. ACFOL [Concomitant]
     Route: 048
  7. TRANEXAMIC ACID [Concomitant]
  8. SUMIAL 40 MG [Concomitant]
     Dosage: 60 MILLIGRAM;
     Route: 048
  9. KONAKION 10 MG [Concomitant]

REACTIONS (3)
  - HEADACHE [None]
  - NEUROPATHY PERIPHERAL [None]
  - EYE INFLAMMATION [None]
